FAERS Safety Report 10485940 (Version 1)
Quarter: 2014Q3

REPORT INFORMATION
  Report Type: Spontaneous
  Country: US (occurrence: None)
  Receive Date: 20140930
  Receipt Date: 20140930
  Transmission Date: 20150326
  Serious: Yes (Hospitalization)
  Sender: FDA-Public Use
  Company Number: None

PATIENT
  Age: 19 Year
  Sex: Male
  Weight: 69.7 kg

DRUGS (12)
  1. ANTI THYMOCYTE GLOBULIN [Suspect]
     Active Substance: THYMOCYTE IMMUNE GLOBULIN NOS
  2. FLUCONAZOLE (FLUCONAZOLE 200 MG ORAL TABLET) [Concomitant]
  3. DOCUSATE (DOCUSATE SODIUM 100 MG ORAL CAPSULE) [Concomitant]
  4. CORTICOSTEROIDS [Suspect]
     Active Substance: CORTICOSTEROID NOS
  5. CYCLOSPORIN [Suspect]
     Active Substance: CYCLOSPORINE
  6. AMLODIPINE (AMLODLPINE 5 MG ORAL TABLET) [Concomitant]
  7. METHYLPREDNISOLONE (MEDROL DOSEPAK 4 MG ORAL TABLET) [Concomitant]
  8. PREDNISONE (PREDNISONE 10 MG ORAL TABLET) [Concomitant]
  9. ACYCLOVIR (ACYCLOVIR 400 MG ORAL TABLET) [Concomitant]
  10. CIPROFLOXACIN (CIPRO 500 MG ORAL TABLET) [Concomitant]
  11. CYCLOSPORINE (CYCLOSPORINE MODIFIED 100 MG ORAL CAPSULE) [Concomitant]
  12. FAMOTIDINE (FAMOTIDINE 20 MG ORAL TABLET) [Concomitant]

REACTIONS (6)
  - Febrile neutropenia [None]
  - Fatigue [None]
  - Aplastic anaemia [None]
  - Asthenia [None]
  - Chills [None]
  - Feeling hot [None]

NARRATIVE: CASE EVENT DATE: 20140926
